FAERS Safety Report 5019869-5 (Version None)
Quarter: 2006Q2

REPORT INFORMATION
  Report Type: 
  Country: None (occurrence: None)
  Receive Date: 20060605
  Receipt Date: 20060605
  Transmission Date: 20061013
  Serious: Yes (Life-Threatening, Disabling, Other)
  Sender: FDA-Public Use
  Company Number: None

PATIENT
  Age: 22 Year
  Sex: Female
  Weight: 56.6996 kg

DRUGS (3)
  1. STRATTERA [Suspect]
     Indication: ATTENTION DEFICIT/HYPERACTIVITY DISORDER
     Dosage: CAPSULE DAILY PO
     Route: 048
     Dates: start: 20030801, end: 20040520
  2. FLUOXETINE HCL  20 MG TEVAU [Suspect]
     Indication: DEPRESSION
     Dosage: CAPSULE DAILY PO
     Route: 048
     Dates: start: 20030701, end: 20040520
  3. FLUOXETINE HCL [Concomitant]

REACTIONS (2)
  - FEELING ABNORMAL [None]
  - SUICIDE ATTEMPT [None]
